FAERS Safety Report 18170171 (Version 3)
Quarter: 2020Q4

REPORT INFORMATION
  Report Type: Other
  Country: CA (occurrence: CA)
  Receive Date: 20200819
  Receipt Date: 20201002
  Transmission Date: 20210113
  Serious: Yes (Other)
  Sender: FDA-Public Use
  Company Number: CA-APOTEX-2020AP016051

PATIENT
  Age: 15 Day
  Sex: Male

DRUGS (1)
  1. ACYCLOVIR. [Suspect]
     Active Substance: ACYCLOVIR
     Indication: PRODUCT USED FOR UNKNOWN INDICATION
     Dosage: UNK
     Route: 065

REACTIONS (14)
  - Arthritis [Recovered/Resolved]
  - Skin exfoliation [Recovered/Resolved]
  - Thrombocytosis [Recovered/Resolved]
  - Fever neonatal [Recovered/Resolved]
  - Erythema [Recovered/Resolved]
  - Infantile apnoea [Recovered/Resolved]
  - Kawasaki^s disease [Recovered/Resolved]
  - Conjunctivitis [Recovered/Resolved]
  - Oedema neonatal [Recovered/Resolved]
  - Ophthalmia neonatorum [Recovered/Resolved]
  - Drug ineffective [Recovered/Resolved]
  - Apnoea [Recovered/Resolved]
  - Oedema [Recovered/Resolved]
  - Pyrexia [Recovered/Resolved]
